FAERS Safety Report 9067905 (Version 1)
Quarter: 2013Q1

REPORT INFORMATION
  Report Type: Spontaneous
  Country: US (occurrence: US)
  Receive Date: 20130215
  Receipt Date: 20130215
  Transmission Date: 20140127
  Serious: No
  Sender: FDA-Public Use
  Company Number: US-BIOGENIDEC-2013BI010334

PATIENT
  Age: 36 Year
  Sex: Male

DRUGS (2)
  1. TYSABRI [Suspect]
     Indication: MULTIPLE SCLEROSIS
     Route: 042
     Dates: start: 20121011
  2. AMPYRA [Concomitant]
     Indication: MULTIPLE SCLEROSIS

REACTIONS (5)
  - Musculoskeletal disorder [Not Recovered/Not Resolved]
  - Pain [Not Recovered/Not Resolved]
  - Headache [Not Recovered/Not Resolved]
  - Vitamin D decreased [Recovered/Resolved]
  - Fatigue [Not Recovered/Not Resolved]
